FAERS Safety Report 15575533 (Version 26)
Quarter: 2024Q3

REPORT INFORMATION
  Report Type: Spontaneous
  Country: US (occurrence: US)
  Receive Date: 20181101
  Receipt Date: 20240823
  Transmission Date: 20241017
  Serious: Yes (Life-Threatening, Hospitalization, Other)
  Sender: PFIZER
  Company Number: US-PFIZER INC-2018067898

PATIENT
  Age: 79 Year
  Sex: Female

DRUGS (4)
  1. XELJANZ XR [Suspect]
     Active Substance: TOFACITINIB CITRATE
     Indication: Arthritis
     Dosage: 11 MG, 2X/DAY
  2. XELJANZ XR [Suspect]
     Active Substance: TOFACITINIB CITRATE
     Dosage: 5 MG, 1X/DAY
  3. XELJANZ XR [Suspect]
     Active Substance: TOFACITINIB CITRATE
     Dosage: 30 MG, DAILY
  4. XELJANZ XR [Suspect]
     Active Substance: TOFACITINIB CITRATE
     Dosage: 11 MILLIGRAMS, ONCE A DAY
     Dates: end: 202402

REACTIONS (37)
  - COVID-19 [Unknown]
  - Pneumonia [Unknown]
  - Back pain [Unknown]
  - Pain in extremity [Unknown]
  - Arthralgia [Unknown]
  - Influenza [Unknown]
  - Spinal fracture [Not Recovered/Not Resolved]
  - Gait inability [Not Recovered/Not Resolved]
  - Dyspnoea [Unknown]
  - Lung neoplasm malignant [Not Recovered/Not Resolved]
  - Musculoskeletal disorder [Unknown]
  - Loss of personal independence in daily activities [Unknown]
  - Near death experience [Unknown]
  - Diabetes mellitus [Unknown]
  - Toe amputation [Unknown]
  - Pain [Recovering/Resolving]
  - Eye disorder [Unknown]
  - Gait disturbance [Unknown]
  - Ear pain [Unknown]
  - Anxiety [Unknown]
  - Chest pain [Unknown]
  - Lung disorder [Unknown]
  - Alopecia [Unknown]
  - Peripheral swelling [Unknown]
  - Oropharyngeal pain [Unknown]
  - Illness [Unknown]
  - Bone pain [Unknown]
  - Pharyngitis streptococcal [Unknown]
  - Dysstasia [Unknown]
  - Uterine leiomyoma [Unknown]
  - Tremor [Unknown]
  - Apraxia [Unknown]
  - Hand deformity [Unknown]
  - Hypoaesthesia [Unknown]
  - Arthralgia [Unknown]
  - Spinal pain [Unknown]
  - Off label use [Unknown]
